FAERS Safety Report 25357041 (Version 1)
Quarter: 2025Q2

REPORT INFORMATION
  Report Type: Spontaneous
  Country: ZA (occurrence: ZA)
  Receive Date: 20250526
  Receipt Date: 20250526
  Transmission Date: 20250716
  Serious: Yes (Hospitalization, Other)
  Sender: LUPIN
  Company Number: ZA-LUPIN PHARMACEUTICALS INC.-2025-04206

PATIENT
  Age: 36 Year
  Sex: Female

DRUGS (5)
  1. ETHAMBUTOL [Suspect]
     Active Substance: ETHAMBUTOL HYDROCHLORIDE
     Indication: Extrapulmonary tuberculosis
     Route: 065
  2. RIFABUTIN [Suspect]
     Active Substance: RIFABUTIN
     Indication: Extrapulmonary tuberculosis
     Route: 065
  3. SULFAMETHOXAZOLE\TRIMETHOPRIM [Suspect]
     Active Substance: SULFAMETHOXAZOLE\TRIMETHOPRIM
     Indication: Antifungal prophylaxis
     Route: 065
  4. ISONIAZID [Concomitant]
     Active Substance: ISONIAZID
     Indication: Extrapulmonary tuberculosis
     Route: 065
  5. RIFAMPIN [Concomitant]
     Active Substance: RIFAMPIN
     Indication: Extrapulmonary tuberculosis
     Route: 065

REACTIONS (1)
  - Drug reaction with eosinophilia and systemic symptoms [Recovered/Resolved]
